FAERS Safety Report 5956752-2 (Version None)
Quarter: 2008Q4

REPORT INFORMATION
  Report Type: 
  Country: None (occurrence: None)
  Receive Date: 20081118
  Receipt Date: 20081110
  Transmission Date: 20090506
  Serious: Yes (Congenital Anomaly)
  Sender: FDA-Public Use
  Company Number: GB-ASTRAZENECA-2008GB02124

PATIENT
  Sex: Male
  Weight: 1.2 kg

DRUGS (4)
  1. LISINOPRIL [Suspect]
     Indication: HYPERTENSION
     Route: 064
  2. BENDROFLUMETHIAZIDE [Suspect]
     Indication: HYPERTENSION
     Route: 064
  3. METHYLDOPA [Concomitant]
     Route: 065
  4. LEVOTHYROXINE SODIUM [Concomitant]
     Indication: HYPOTHYROIDISM
     Route: 064

REACTIONS (7)
  - BLOOD CREATININE INCREASED [None]
  - FEEDING DISORDER OF INFANCY OR EARLY CHILDHOOD [None]
  - GROWTH RETARDATION [None]
  - NEONATAL RESPIRATORY DISTRESS SYNDROME [None]
  - NEPHROCALCINOSIS [None]
  - PREMATURE BABY [None]
  - URINE OXALATE INCREASED [None]
